FAERS Safety Report 17896929 (Version 1)
Quarter: 2020Q2

REPORT INFORMATION
  Report Type: Report from Study
  Country: US (occurrence: US)
  Receive Date: 20200615
  Receipt Date: 20200615
  Transmission Date: 20200714
  Serious: Yes (Other)
  Sender: FDA-Public Use
  Company Number: US-BAUSCH-BL-2020-017087

PATIENT
  Age: 65 Year
  Sex: Male

DRUGS (10)
  1. LACTULOSE. [Suspect]
     Active Substance: LACTULOSE
     Indication: HEPATIC ENCEPHALOPATHY
     Dosage: 10G/ 15 ML SOLUTION, TAKE 30ML (DISPENSED: 5676 ML)
     Route: 048
  2. PROTONIX [Concomitant]
     Active Substance: PANTOPRAZOLE SODIUM
     Indication: ULCER
  3. INSPRA [Concomitant]
     Active Substance: EPLERENONE
     Indication: OEDEMA
     Dosage: DAILY (DISPENSED: 90 TABLET)
     Route: 048
  4. INSPRA [Concomitant]
     Active Substance: EPLERENONE
     Indication: ASCITES
  5. ADVIL [Concomitant]
     Active Substance: IBUPROFEN
     Indication: PRODUCT USED FOR UNKNOWN INDICATION
     Dosage: BY MOUTH
     Route: 048
  6. XIFAXAN [Suspect]
     Active Substance: RIFAXIMIN
     Indication: HEPATIC ENCEPHALOPATHY
     Dosage: BY MOUTH (DISPENSED: 180 TABLET)
     Route: 048
  7. PROTONIX [Concomitant]
     Active Substance: PANTOPRAZOLE SODIUM
     Indication: GASTROOESOPHAGEAL REFLUX DISEASE
     Dosage: (DISPENSED: 180 TABLET)
     Route: 048
  8. LASIX [Concomitant]
     Active Substance: FUROSEMIDE
     Indication: OEDEMA
     Dosage: (DISPENSED: 90 TABLET)
     Route: 048
  9. LASIX [Concomitant]
     Active Substance: FUROSEMIDE
     Indication: ASCITES
  10. KENALOG [Concomitant]
     Active Substance: TRIAMCINOLONE ACETONIDE
     Indication: PRODUCT USED FOR UNKNOWN INDICATION
     Dosage: APPLY TOPICALLY AS NEEDED
     Route: 061

REACTIONS (6)
  - Abdominal distension [Unknown]
  - Physical deconditioning [Unknown]
  - Decreased activity [Unknown]
  - Balance disorder [Unknown]
  - Weight fluctuation [Unknown]
  - Aphasia [Unknown]
